FAERS Safety Report 6452742-4 (Version None)
Quarter: 2009Q4

REPORT INFORMATION
  Report Type: 
  Country: None (occurrence: None)
  Receive Date: 20091124
  Receipt Date: 20091113
  Transmission Date: 20100525
  Serious: Yes (Other)
  Sender: FDA-Public Use
  Company Number: US-PFIZER INC-2009298699

PATIENT
  Sex: Female
  Weight: 77.551 kg

DRUGS (11)
  1. NEURONTIN [Suspect]
     Indication: TRAUMATIC BRAIN INJURY
     Dosage: 400 MG, 1X/DAY
     Route: 048
     Dates: start: 20000901
  2. MAXALT [Suspect]
     Indication: MIGRAINE
     Dosage: UNK
  3. GABAPENTIN [Suspect]
     Indication: TRAUMATIC BRAIN INJURY
     Dates: start: 20060101, end: 20060101
  4. KLONOPIN [Concomitant]
     Dosage: 0.5 MG, 2X/DAY
  5. ZOLOFT [Concomitant]
     Dosage: 100 MG, 2X/DAY
  6. VERAPAMIL [Concomitant]
     Indication: MIGRAINE PROPHYLAXIS
     Dosage: 240 MG, 1X/DAY
  7. ALLEGRA D 24 HOUR [Concomitant]
     Indication: ALLERGY TO ANIMAL
     Dosage: 60/120MG, 2X/DAY
  8. AMERGE [Concomitant]
     Indication: MIGRAINE
     Dosage: 2.5 MG, AS NEEDED
  9. CLINDAMYCIN [Concomitant]
     Indication: SKIN LESION
     Route: 061
  10. MUPIROCIN [Concomitant]
     Indication: SKIN INFECTION
     Route: 061
  11. ALBUTEROL [Concomitant]
     Indication: ASTHMA
     Dosage: UNK

REACTIONS (2)
  - DRUG TOXICITY [None]
  - MOOD SWINGS [None]
